FAERS Safety Report 4499576-8 (Version None)
Quarter: 2004Q4

REPORT INFORMATION
  Report Type: 
  Country: None (occurrence: None)
  Receive Date: 20040928
  Receipt Date: 20040816
  Transmission Date: 20050328
  Serious: No
  Sender: FDA-Public Use
  Company Number: 04P-163-0270750-00

PATIENT
  Age: 51 Year
  Sex: Female
  Weight: 83.0083 kg

DRUGS (5)
  1. HUMIRA [Suspect]
     Indication: PSORIATIC ARTHROPATHY
     Dosage: 40MG, 1 IN 2 WK, SUBCUTANEOUS
     Route: 058
     Dates: start: 20040501
  2. BUCINDOLOL HYDROCHLORIDE [Concomitant]
  3. CLARINEX [Concomitant]
  4. LEXAPRO [Concomitant]
  5. ACETAMINOPHEN W/ CODEINE [Concomitant]

REACTIONS (1)
  - INJECTION SITE BURNING [None]
